FAERS Safety Report 6615950-5 (Version None)
Quarter: 2010Q1

REPORT INFORMATION
  Report Type: 
  Country: None (occurrence: None)
  Receive Date: 20100305
  Receipt Date: 20100226
  Transmission Date: 20100710
  Serious: Yes (Other)
  Sender: FDA-Public Use
  Company Number: A0847040A

PATIENT
  Age: 54 Year
  Sex: Male

DRUGS (3)
  1. DIPHTHERIA,TETANUS + PERTUSSIS VACCINE,UNSPECIFIED [Suspect]
     Indication: PROPHYLAXIS
     Route: 065
     Dates: start: 20100224, end: 20100224
  2. ADVAIR DISKUS 100/50 [Suspect]
     Indication: ASTHMA
     Dosage: 2PUFF TWICE PER DAY
     Route: 055
     Dates: start: 20100222, end: 20100223
  3. NO CONCURRENT MEDICATION [Concomitant]

REACTIONS (2)
  - ATRIAL FIBRILLATION [None]
  - PYREXIA [None]
